FAERS Safety Report 24214741 (Version 1)
Quarter: 2024Q3

REPORT INFORMATION
  Report Type: Spontaneous
  Country: US (occurrence: US)
  Receive Date: 20240815
  Receipt Date: 20240815
  Transmission Date: 20241017
  Serious: No
  Sender: RVL PHARMACEUTICALS
  Company Number: US-RVL_Pharmaceuticals-USA-POI1255202400036

PATIENT
  Age: 78 Year
  Sex: Female

DRUGS (1)
  1. UPNEEQ [Suspect]
     Active Substance: OXYMETAZOLINE HYDROCHLORIDE
     Indication: Eyelid ptosis
     Dosage: OD
     Route: 047
     Dates: start: 20240213, end: 20240213

REACTIONS (3)
  - Foreign body sensation in eyes [Recovered/Resolved]
  - Scleral oedema [Recovered/Resolved]
  - Vision blurred [Recovered/Resolved]

NARRATIVE: CASE EVENT DATE: 20240213
